FAERS Safety Report 5374536-3 (Version None)
Quarter: 2007Q2

REPORT INFORMATION
  Report Type: 
  Country: None (occurrence: None)
  Receive Date: 20070629
  Receipt Date: 20070627
  Transmission Date: 20071010
  Serious: Yes (Hospitalization)
  Sender: FDA-Public Use
  Company Number: BR-BRISTOL-MYERS SQUIBB COMPANY-13828629

PATIENT
  Age: 50 Year
  Sex: Male
  Weight: 78 kg

DRUGS (1)
  1. HYDREA [Suspect]
     Indication: CHRONIC LEUKAEMIA
     Route: 048
     Dates: start: 20070524, end: 20070526

REACTIONS (16)
  - ACCIDENTAL OVERDOSE [None]
  - ANOREXIA [None]
  - ASPHYXIA [None]
  - ASPIRATION BONE MARROW ABNORMAL [None]
  - ASTHENIA [None]
  - BLOOD DISORDER [None]
  - BURNING SENSATION [None]
  - CARDIOVASCULAR DISORDER [None]
  - HAEMATEMESIS [None]
  - HAEMATOCHEZIA [None]
  - HAEMORRHAGE [None]
  - NAUSEA [None]
  - OEDEMA PERIPHERAL [None]
  - STOMACH DISCOMFORT [None]
  - TREATMENT NONCOMPLIANCE [None]
  - WEIGHT FLUCTUATION [None]
